FAERS Safety Report 25639942 (Version 1)
Quarter: 2025Q3

REPORT INFORMATION
  Report Type: Spontaneous
  Country: US (occurrence: US)
  Receive Date: 20250804
  Receipt Date: 20250804
  Transmission Date: 20251021
  Serious: No
  Sender: ROCHE
  Company Number: US-ROCHE-10000351401

PATIENT

DRUGS (5)
  1. XOLAIR [Suspect]
     Active Substance: OMALIZUMAB
     Indication: Product used for unknown indication
     Route: 065
  2. CYCLOSPORINE [Concomitant]
     Active Substance: CYCLOSPORINE
  3. PREDNISONE [Concomitant]
     Active Substance: PREDNISONE
  4. DUPIXENT [Concomitant]
     Active Substance: DUPILUMAB
  5. RINVOQ [Concomitant]
     Active Substance: UPADACITINIB

REACTIONS (2)
  - Drug ineffective [Unknown]
  - No adverse event [Unknown]
